FAERS Safety Report 9238410 (Version 3)
Quarter: 2014Q1

REPORT INFORMATION
  Report Type: Spontaneous
  Country: US (occurrence: None)
  Receive Date: 20130416
  Receipt Date: 20130815
  Transmission Date: 20141002
  Serious: Yes (Other)
  Sender: FDA-Public Use
  Company Number: ADR-2013-00573

PATIENT
  Age: 71 Year
  Sex: Male

DRUGS (2)
  1. LIORESAL [Suspect]
     Indication: MUSCLE SPASTICITY
  2. SALINE [Concomitant]

REACTIONS (5)
  - Drug ineffective [None]
  - Asthenia [None]
  - Dysstasia [None]
  - Hypotonia [None]
  - Muscular weakness [None]
